FAERS Safety Report 5467837-1 (Version None)
Quarter: 2007Q3

REPORT INFORMATION
  Report Type: 
  Country: None (occurrence: None)
  Receive Date: 20070924
  Receipt Date: 20070907
  Transmission Date: 20080115
  Serious: Yes (Hospitalization)
  Sender: FDA-Public Use
  Company Number: AVE_00145_2007

PATIENT
  Sex: Female
  Weight: 77.1115 kg

DRUGS (3)
  1. NICOTINE TRANSDERMAL SYSTEM 21 MG [Suspect]
     Indication: SMOKING CESSATION THERAPY
     Dosage: (21 MG 1X/24 HOURS TRANSDERMAL)
     Route: 062
     Dates: start: 20010401
  2. NOVO-DIFENAC [Concomitant]
  3. ADVAIR DISKUS 100/50 [Concomitant]

REACTIONS (4)
  - APPLICATION SITE RASH [None]
  - DRUG INEFFECTIVE [None]
  - ORTHOSIS USER [None]
  - RASH ERYTHEMATOUS [None]
